FAERS Safety Report 13098655 (Version 1)
Quarter: 2017Q1

REPORT INFORMATION
  Report Type: Spontaneous
  Country: US (occurrence: US)
  Receive Date: 20170109
  Receipt Date: 20170109
  Transmission Date: 20170428
  Serious: Yes (Other)
  Sender: FDA-Public Use
  Company Number: US-TEVA-726997USA

PATIENT
  Sex: Female
  Weight: 61 kg

DRUGS (1)
  1. WARFARIN [Suspect]
     Active Substance: WARFARIN

REACTIONS (3)
  - International normalised ratio decreased [Unknown]
  - Body height decreased [Unknown]
  - Blindness transient [Unknown]
